FAERS Safety Report 6396869-4 (Version None)
Quarter: 2009Q4

REPORT INFORMATION
  Report Type: 
  Country: None (occurrence: None)
  Receive Date: 20091012
  Receipt Date: 20090714
  Transmission Date: 20100525
  Serious: No
  Sender: FDA-Public Use
  Company Number: US-ASTRAZENECA-2009UW19740

PATIENT
  Sex: Male
  Weight: 116.1 kg

DRUGS (1)
  1. SYMBICORT [Suspect]
     Route: 055

REACTIONS (2)
  - DYSPNOEA [None]
  - HEARING IMPAIRED [None]
